FAERS Safety Report 15340233 (Version 2)
Quarter: 2018Q4

REPORT INFORMATION
  Report Type: Report from Study
  Country: IT (occurrence: IT)
  Receive Date: 20180831
  Receipt Date: 20181008
  Transmission Date: 20190204
  Serious: Yes (Hospitalization)
  Sender: FDA-Public Use
  Company Number: IT-PFIZER INC-2018349048

PATIENT
  Age: 47 Year
  Sex: Male

DRUGS (3)
  1. GABAPENTIN. [Suspect]
     Active Substance: GABAPENTIN
     Dosage: 8 DF, SINGLE
     Route: 048
     Dates: start: 20180614, end: 20180614
  2. TRITTICO [Suspect]
     Active Substance: TRAZODONE HYDROCHLORIDE
     Dosage: 20 DF, SINGLE
     Route: 048
     Dates: start: 20180614, end: 20180614
  3. OLANZAPINE. [Suspect]
     Active Substance: OLANZAPINE
     Dosage: 80 MG, SINGLE
     Route: 048
     Dates: start: 20180614, end: 20180614

REACTIONS (5)
  - Toxicity to various agents [Recovering/Resolving]
  - Drug abuse [Recovering/Resolving]
  - Abdominal pain upper [Recovering/Resolving]
  - Withdrawal syndrome [Recovering/Resolving]
  - Nausea [Recovering/Resolving]

NARRATIVE: CASE EVENT DATE: 20180614
